FAERS Safety Report 4503177-2 (Version None)
Quarter: 2004Q4

REPORT INFORMATION
  Report Type: 
  Country: None (occurrence: None)
  Receive Date: 20041117
  Receipt Date: 20041112
  Transmission Date: 20050328
  Serious: Yes (Hospitalization)
  Sender: FDA-Public Use
  Company Number: US-MERCK-0411USA02365

PATIENT
  Sex: Male

DRUGS (2)
  1. STROMECTOL [Suspect]
     Indication: ACARODERMATITIS
     Route: 048
  2. TACROLIMUS [Concomitant]
     Route: 065

REACTIONS (3)
  - DRUG LEVEL DECREASED [None]
  - NEPHROLITHIASIS [None]
  - RENAL PAPILLARY NECROSIS [None]
